FAERS Safety Report 5748480-3 (Version None)
Quarter: 2008Q2

REPORT INFORMATION
  Report Type: 
  Country: None (occurrence: None)
  Receive Date: 20080520
  Receipt Date: 20080414
  Transmission Date: 20081010
  Serious: Yes (Other)
  Sender: FDA-Public Use
  Company Number: CART-10497

PATIENT
  Age: 38 Year
  Sex: Male

DRUGS (2)
  1. CARTICEL [Suspect]
     Indication: ARTHROPATHY
     Dosage: 1 , ONCE, OTHER
     Route: 050
     Dates: start: 20070627, end: 20070627
  2. PEGASYS [Suspect]
     Indication: ARTHROPATHY
     Dosage: ONCE
     Dates: start: 20070627, end: 20070627

REACTIONS (7)
  - BURSITIS [None]
  - CARTILAGE INJURY [None]
  - GRAFT COMPLICATION [None]
  - HYPOTONIA [None]
  - JOINT EFFUSION [None]
  - LOOSE BODY IN JOINT [None]
  - SYNOVITIS [None]
